FAERS Safety Report 16860796 (Version 1)
Quarter: 2019Q3

REPORT INFORMATION
  Report Type: Spontaneous
  Country: US (occurrence: US)
  Receive Date: 20190927
  Receipt Date: 20190927
  Transmission Date: 20191005
  Serious: No
  Sender: FDA-Public Use
  Company Number: US-PFIZER INC-2019415569

PATIENT
  Age: 61 Year
  Sex: Female

DRUGS (3)
  1. HYDROXYZINE PAMOATE. [Suspect]
     Active Substance: HYDROXYZINE PAMOATE
     Dosage: UNK
  2. PANTOPRAZOLE [Suspect]
     Active Substance: PANTOPRAZOLE
     Dosage: UNK
  3. SUCRALFATE. [Suspect]
     Active Substance: SUCRALFATE
     Dosage: UNK

REACTIONS (1)
  - Drug hypersensitivity [Unknown]
